FAERS Safety Report 9361634 (Version 2)
Quarter: 2013Q4

REPORT INFORMATION
  Report Type: Spontaneous
  Country: FR (occurrence: FR)
  Receive Date: 20130621
  Receipt Date: 20131217
  Transmission Date: 20140711
  Serious: Yes (Other)
  Sender: FDA-Public Use
  Company Number: FR-ASTRAZENECA-2013SE46726

PATIENT
  Sex: 0

DRUGS (1)
  1. BRILIQUE [Suspect]
     Route: 048

REACTIONS (2)
  - Acute pulmonary oedema [Unknown]
  - Haemoptysis [Unknown]
